FAERS Safety Report 10969350 (Version 1)
Quarter: 2015Q1

REPORT INFORMATION
  Report Type: Spontaneous
  Country: US (occurrence: None)
  Receive Date: 20150330
  Receipt Date: 20150330
  Transmission Date: 20150721
  Serious: Yes (Death)
  Sender: FDA-Public Use
  Company Number: None

PATIENT
  Age: 56 Year
  Sex: Male
  Weight: 90.72 kg

DRUGS (2)
  1. DIPHENHYDRAMINE [Concomitant]
     Active Substance: DIPHENHYDRAMINE
  2. HALOPERIDOL LACTATE. [Suspect]
     Active Substance: HALOPERIDOL LACTATE
     Indication: AGITATION
     Dosage: 1X PRN AGITATION
     Route: 030
     Dates: start: 20150318, end: 20150318

REACTIONS (7)
  - Loss of consciousness [None]
  - Vomiting [None]
  - Neuroleptic malignant syndrome [None]
  - Muscle rigidity [None]
  - Cardio-respiratory arrest [None]
  - Pulse abnormal [None]
  - Tremor [None]

NARRATIVE: CASE EVENT DATE: 20150318
